FAERS Safety Report 23656364 (Version 1)
Quarter: 2024Q1

REPORT INFORMATION
  Report Type: Spontaneous
  Country: GB (occurrence: GB)
  Receive Date: 20240321
  Receipt Date: 20240321
  Transmission Date: 20240410
  Serious: Yes (Disabling)
  Sender: FDA-Public Use
  Company Number: GB-Zentiva-2023-ZT-020339

PATIENT
  Age: 70 Year
  Sex: Female

DRUGS (1)
  1. ALLEGRA ALLERGY [Suspect]
     Active Substance: FEXOFENADINE HYDROCHLORIDE
     Indication: Multiple allergies
     Route: 048

REACTIONS (3)
  - Asthma [Not Recovered/Not Resolved]
  - Product availability issue [Not Recovered/Not Resolved]
  - Product administration interrupted [Not Recovered/Not Resolved]
